FAERS Safety Report 6944565-4 (Version None)
Quarter: 2010Q3

REPORT INFORMATION
  Report Type: 
  Country: None (occurrence: None)
  Receive Date: 20100825
  Receipt Date: 20100825
  Transmission Date: 20110219
  Serious: No
  Sender: FDA-Public Use
  Company Number: None

PATIENT
  Sex: Female
  Weight: 73.3 kg

DRUGS (6)
  1. CARBOPLATIN [Suspect]
     Dosage: 497 MG
     Dates: end: 20100820
  2. TAXOTERE [Suspect]
     Dosage: 137 MG
     Dates: end: 20100820
  3. ESOMEPRAZOLE MAGNESIUM [Concomitant]
  4. LISINOPRIL [Concomitant]
  5. NIACIN [Concomitant]
  6. SIMVASTATIN [Concomitant]

REACTIONS (1)
  - ANAPHYLACTIC REACTION [None]
